FAERS Safety Report 17152297 (Version 4)
Quarter: 2021Q3

REPORT INFORMATION
  Report Type: Spontaneous
  Country: JP (occurrence: JP)
  Receive Date: 20191213
  Receipt Date: 20210713
  Transmission Date: 20211014
  Serious: Yes (Life-Threatening, Hospitalization)
  Sender: FDA-Public Use
  Company Number: JP-CELGENEUS-JPN-20191204202

PATIENT
  Age: 75 Year
  Sex: Male
  Weight: 52.3 kg

DRUGS (3)
  1. ISTODAX [Suspect]
     Active Substance: ROMIDEPSIN
     Dosage: 20 MILLIGRAM
     Route: 041
     Dates: start: 20191129, end: 20191129
  2. ISTODAX [Suspect]
     Active Substance: ROMIDEPSIN
     Indication: ANGIOIMMUNOBLASTIC T-CELL LYMPHOMA
     Dosage: 20 MILLIGRAM
     Route: 041
     Dates: start: 20191101, end: 20191101
  3. ISTODAX [Suspect]
     Active Substance: ROMIDEPSIN
     Dosage: 20 MILLIGRAM
     Route: 041
     Dates: start: 20191115, end: 20191115

REACTIONS (5)
  - Cytomegalovirus infection reactivation [Recovered/Resolved]
  - Epstein-Barr virus infection reactivation [Recovering/Resolving]
  - Haemophagocytic lymphohistiocytosis [Recovering/Resolving]
  - Rash [Recovered/Resolved]
  - Pyrexia [Recovered/Resolved]

NARRATIVE: CASE EVENT DATE: 20191101
